FAERS Safety Report 17757221 (Version 1)
Quarter: 2020Q2

REPORT INFORMATION
  Report Type: Report from Study
  Country: GB (occurrence: GB)
  Receive Date: 20200507
  Receipt Date: 20200507
  Transmission Date: 20200714
  Serious: Yes (Other)
  Sender: FDA-Public Use
  Company Number: NVSC2019GB057131

PATIENT
  Sex: Female

DRUGS (1)
  1. HYRIMOZ [Suspect]
     Active Substance: ADALIMUMAB-ADAZ
     Indication: ANKYLOSING SPONDYLITIS
     Dosage: UNK, Q2W
     Route: 065
     Dates: start: 20190928

REACTIONS (9)
  - Nasopharyngitis [Not Recovered/Not Resolved]
  - Abdominal discomfort [Unknown]
  - Pleurisy [Unknown]
  - Immune system disorder [Not Recovered/Not Resolved]
  - Malaise [Unknown]
  - Lower respiratory tract infection [Not Recovered/Not Resolved]
  - Pneumonia [Unknown]
  - Diarrhoea [Unknown]
  - Cough [Not Recovered/Not Resolved]
